FAERS Safety Report 20231732 (Version 1)
Quarter: 2021Q4

REPORT INFORMATION
  Report Type: Spontaneous
  Country: US (occurrence: US)
  Receive Date: 20211227
  Receipt Date: 20211227
  Transmission Date: 20220303
  Serious: No
  Sender: FDA-Public Use
  Company Number: US-AVEO ONCOLOGY-2021-AVEO-US003684

PATIENT

DRUGS (16)
  1. FOTIVDA [Suspect]
     Active Substance: TIVOZANIB HYDROCHLORIDE
     Indication: Renal cell carcinoma
     Dosage: 1.34 MG TAKE 1 TABLET FOR 21 DAYS ON AND 7 DAYS OFF
     Route: 048
     Dates: start: 20210926
  2. CRESTOR [Concomitant]
     Active Substance: ROSUVASTATIN CALCIUM
  3. FAMOTIDINE [Concomitant]
     Active Substance: FAMOTIDINE
  4. LEVOTHYROXINE SODIUM [Concomitant]
     Active Substance: LEVOTHYROXINE SODIUM
  5. FOLIC ACID [Concomitant]
     Active Substance: FOLIC ACID
  6. KEPPRA [Concomitant]
     Active Substance: LEVETIRACETAM
  7. LOPERAMIDE HYDROCHLORIDE [Concomitant]
     Active Substance: LOPERAMIDE HYDROCHLORIDE
  8. LUTEIN [Concomitant]
     Active Substance: LUTEIN
  9. PANTOPRAZOLE SODIUM [Concomitant]
     Active Substance: PANTOPRAZOLE SODIUM
  10. PROCHLORPERAZINE MALEATE [Concomitant]
     Active Substance: PROCHLORPERAZINE MALEATE
  11. PSYLLIUM [Concomitant]
     Active Substance: PLANTAGO SEED
  12. VITAMINS [Concomitant]
     Active Substance: VITAMINS
  13. VITAMIN D3 [Concomitant]
     Active Substance: CHOLECALCIFEROL
  14. GLUCOSAMINE [Concomitant]
     Active Substance: GLUCOSAMINE
  15. ACETAMINOPHEN\OXYCODONE HYDROCHLORIDE [Concomitant]
     Active Substance: ACETAMINOPHEN\OXYCODONE HYDROCHLORIDE
  16. ZOFRAN [Concomitant]
     Active Substance: ONDANSETRON HYDROCHLORIDE
     Dosage: 8 MG
     Route: 048

REACTIONS (7)
  - Dysphonia [Unknown]
  - Fatigue [Unknown]
  - Nausea [Recovered/Resolved with Sequelae]
  - Decreased appetite [Unknown]
  - Pruritus [Unknown]
  - Drug interaction [Unknown]
  - Weight decreased [Unknown]
